FAERS Safety Report 24857138 (Version 1)
Quarter: 2025Q1

REPORT INFORMATION
  Report Type: Spontaneous
  Country: US (occurrence: None)
  Receive Date: 20250117
  Receipt Date: 20250117
  Transmission Date: 20250409
  Serious: Yes (unspecified)
  Sender: FDA-CTU
  Company Number: None

PATIENT
  Age: 75 Year
  Sex: Female

DRUGS (10)
  1. XDEMVY [Suspect]
     Active Substance: LOTILANER
     Indication: Blepharitis
     Dosage: OTHER QUANTITY : ONEDROPINEACHEYE;?FREQUENCY : TWICE A DAY;?
     Route: 014
     Dates: start: 20241212, end: 202501
  2. Artificial tears [Concomitant]
  3. Calcium 500mg [Concomitant]
  4. Famotidine 10mg [Concomitant]
  5. Levothyroxine 0.025mg [Concomitant]
  6. LUMIGAN [Concomitant]
     Active Substance: BIMATOPROST
  7. BETIMOL [Concomitant]
     Active Substance: TIMOLOL
  8. Vitamin C 500mg [Concomitant]
  9. Vitamin D 1000units [Concomitant]
  10. Zinc 50mg [Concomitant]

REACTIONS (2)
  - Vision blurred [None]
  - Photosensitivity reaction [None]

NARRATIVE: CASE EVENT DATE: 20250101
